FAERS Safety Report 9378662 (Version 1)
Quarter: 2013Q2

REPORT INFORMATION
  Report Type: Spontaneous
  Country: None (occurrence: None)
  Receive Date: 20130626
  Receipt Date: 20130626
  Transmission Date: 20140414
  Serious: Yes (Other)
  Sender: FDA-Public Use
  Company Number: 2013/126

PATIENT
  Age: 23 Year
  Sex: Male

DRUGS (2)
  1. LEVETIRACETAM [Suspect]
  2. VALPROATE [Concomitant]

REACTIONS (1)
  - Hypoglycaemia [None]
